FAERS Safety Report 6819280-8 (Version None)
Quarter: 2010Q3

REPORT INFORMATION
  Report Type: 
  Country: None (occurrence: None)
  Receive Date: 20100707
  Receipt Date: 20100624
  Transmission Date: 20110219
  Serious: Yes (Hospitalization)
  Sender: FDA-Public Use
  Company Number: US-ELI_LILLY_AND_COMPANY-US201005007044

PATIENT
  Sex: Female

DRUGS (6)
  1. FORTEO [Suspect]
     Indication: OSTEOPOROSIS
     Dosage: 20 UG, DAILY (1/D)
     Dates: start: 20090501, end: 20100531
  2. PREDNISONE TAB [Concomitant]
     Dosage: 10 MG, DAILY (1/D)
  3. LORTAB [Concomitant]
  4. SKELAXIN [Concomitant]
  5. KLONOPIN [Concomitant]
  6. LYRICA [Concomitant]

REACTIONS (8)
  - BIOPSY BREAST [None]
  - CHILLS [None]
  - COLITIS ISCHAEMIC [None]
  - HAEMATOCHEZIA [None]
  - HYPERSOMNIA [None]
  - PROCEDURAL COMPLICATION [None]
  - PYREXIA [None]
  - SYSTEMIC LUPUS ERYTHEMATOSUS [None]
